FAERS Safety Report 6088136-3 (Version None)
Quarter: 2009Q1

REPORT INFORMATION
  Report Type: 
  Country: None (occurrence: None)
  Receive Date: 20090224
  Receipt Date: 20090213
  Transmission Date: 20090719
  Serious: Yes (Life-Threatening)
  Sender: FDA-Public Use
  Company Number: GB-RANBAXY-2009RR-21891

PATIENT
  Age: 13 Year
  Sex: Male
  Weight: 47.6 kg

DRUGS (2)
  1. IBUPROFEN [Suspect]
     Dosage: 200 MG, UNK
     Route: 048
     Dates: start: 20090128, end: 20090128
  2. SALBUTAMOL [Concomitant]
     Route: 055

REACTIONS (1)
  - ANAPHYLACTIC REACTION [None]
